FAERS Safety Report 5388629-8 (Version None)
Quarter: 2007Q3

REPORT INFORMATION
  Report Type: 
  Country: None (occurrence: None)
  Receive Date: 20070716
  Receipt Date: 20070711
  Transmission Date: 20080115
  Serious: Yes (Hospitalization)
  Sender: FDA-Public Use
  Company Number: BE-ROXANE LABORATORIES, INC-2007-BP-17187RO

PATIENT
  Age: 75 Year
  Sex: Female

DRUGS (10)
  1. LITHIUM CARBONATE [Suspect]
     Route: 048
  2. NIMESULIDE [Suspect]
     Indication: PAIN
     Dosage: 100 MG DAILY
  3. VENLAFAXINE HCL [Concomitant]
  4. TRAZODONE HCL [Concomitant]
  5. DULOXETINE [Concomitant]
  6. BISOPROLOL [Concomitant]
  7. SIMVASTATIN [Concomitant]
  8. METFORMINE [Concomitant]
  9. ALPRAZOLAM [Concomitant]
  10. ZOPICLON [Concomitant]

REACTIONS (7)
  - APHASIA [None]
  - CONFUSIONAL STATE [None]
  - DRUG INTERACTION [None]
  - MUSCLE RIGIDITY [None]
  - MUSCULAR WEAKNESS [None]
  - THERAPEUTIC AGENT TOXICITY [None]
  - TREMOR [None]
